FAERS Safety Report 7512748-0 (Version None)
Quarter: 2011Q2

REPORT INFORMATION
  Report Type: 
  Country: None (occurrence: None)
  Receive Date: 20110531
  Receipt Date: 20110513
  Transmission Date: 20111010
  Serious: Yes (Hospitalization)
  Sender: FDA-Public Use
  Company Number: A0789892A

PATIENT
  Age: 47 Year
  Sex: Male

DRUGS (10)
  1. QUINAPRIL [Concomitant]
  2. SYMLIN [Concomitant]
  3. ALTACE [Concomitant]
  4. ZETIA [Concomitant]
  5. TRICOR [Concomitant]
  6. LESCOL [Concomitant]
  7. LIPITOR [Concomitant]
  8. AVANDIA [Suspect]
     Dosage: 8MG PER DAY
     Route: 065
     Dates: start: 20010201, end: 20070201
  9. ZOLOFT [Concomitant]
  10. INSULIN [Concomitant]

REACTIONS (3)
  - CORONARY ARTERY DISEASE [None]
  - MYOCARDIAL INFARCTION [None]
  - MYOCARDIAL ISCHAEMIA [None]
